FAERS Safety Report 14997036 (Version 1)
Quarter: 2018Q2

REPORT INFORMATION
  Report Type: Spontaneous
  Country: CA (occurrence: CA)
  Receive Date: 20180611
  Receipt Date: 20180611
  Transmission Date: 20180711
  Serious: Yes (Disabling)
  Sender: FDA-Public Use
  Company Number: CA-AMGEN-CANSP2018055540

PATIENT
  Age: 65 Year
  Sex: Female
  Weight: 58 kg

DRUGS (3)
  1. REPATHA [Suspect]
     Active Substance: EVOLOCUMAB
     Indication: DYSLIPIDAEMIA
     Dosage: 140 MG, UNK
     Route: 058
     Dates: start: 20160914, end: 20161014
  2. D TABS [Concomitant]
     Indication: PROPHYLAXIS
     Dosage: 10000 IU, UNK
  3. DEXILANT [Concomitant]
     Active Substance: DEXLANSOPRAZOLE
     Indication: GASTROOESOPHAGEAL REFLUX DISEASE
     Dosage: 60 MG, UNK

REACTIONS (9)
  - Muscle spasms [Recovered/Resolved]
  - Joint stiffness [Recovered/Resolved]
  - White blood cell count increased [Unknown]
  - Gait disturbance [Recovered/Resolved]
  - Chest pain [Unknown]
  - Myalgia [Recovered/Resolved]
  - Neutrophil count decreased [Unknown]
  - Platelet count increased [Unknown]
  - Lymphocyte count increased [Unknown]

NARRATIVE: CASE EVENT DATE: 201609
